FAERS Safety Report 12201034 (Version 1)
Quarter: 2016Q1

REPORT INFORMATION
  Report Type: Spontaneous
  Country: US (occurrence: US)
  Receive Date: 20160322
  Receipt Date: 20160322
  Transmission Date: 20160526
  Serious: No
  Sender: FDA-Public Use
  Company Number: US-WARNER CHILCOTT, LLC-1049436

PATIENT
  Age: 65 Year
  Sex: Female

DRUGS (2)
  1. XIFAXAN [Concomitant]
     Active Substance: RIFAXIMIN
     Dates: end: 201508
  2. ESTRACE [Suspect]
     Active Substance: ESTRADIOL
     Indication: VAGINAL ATRESIA
     Route: 067
     Dates: start: 201504, end: 201509

REACTIONS (1)
  - Alopecia [Recovering/Resolving]
